FAERS Safety Report 12278461 (Version 2)
Quarter: 2016Q2

REPORT INFORMATION
  Report Type: Report from Study
  Country: US (occurrence: US)
  Receive Date: 20160418
  Receipt Date: 20160510
  Transmission Date: 20160815
  Serious: Yes (Death, Life-Threatening, Other)
  Sender: FDA-Public Use
  Company Number: US-ASTRAZENECA-2016SE39600

PATIENT
  Age: 72 Year
  Sex: Female

DRUGS (1)
  1. LYNPARZA [Suspect]
     Active Substance: OLAPARIB
     Indication: MALIGNANT PERITONEAL NEOPLASM
     Route: 048

REACTIONS (6)
  - Aspiration [Fatal]
  - Anaemia [Unknown]
  - Vomiting [Unknown]
  - Respiratory distress [Unknown]
  - Condition aggravated [Unknown]
  - Confusional state [Unknown]
